FAERS Safety Report 5489388-0 (Version None)
Quarter: 2007Q4

REPORT INFORMATION
  Report Type: 
  Country: None (occurrence: None)
  Receive Date: 20071005
  Receipt Date: 20070619
  Transmission Date: 20080405
  Serious: No
  Sender: FDA-Public Use
  Company Number: PHEH2007US07916

PATIENT
  Age: 81 Year
  Sex: Female
  Weight: 105.2 kg

DRUGS (5)
  1. TEKTURNA [Suspect]
     Indication: HYPERTENSION
     Dosage: 300 MG, QD, ORAL
     Route: 048
     Dates: start: 20070514, end: 20070517
  2. DIOVAN [Concomitant]
  3. NORVASC [Concomitant]
  4. CLONIDINE [Concomitant]
  5. TOPROL-XL [Concomitant]

REACTIONS (3)
  - HEADACHE [None]
  - PAIN [None]
  - PRURITUS GENERALISED [None]
